FAERS Safety Report 18433562 (Version 1)
Quarter: 2020Q4

REPORT INFORMATION
  Report Type: Spontaneous
  Country: GB (occurrence: GB)
  Receive Date: 20201027
  Receipt Date: 20201027
  Transmission Date: 20210114
  Serious: Yes (Death)
  Sender: FDA-Public Use
  Company Number: GB-DEXPHARM-20200987

PATIENT
  Sex: Male

DRUGS (2)
  1. VOLTAROL [Suspect]
     Active Substance: DICLOFENAC SODIUM
     Route: 061
  2. PARAFFINS [Suspect]
     Active Substance: PARAFFIN
     Route: 061

REACTIONS (1)
  - Thermal burn [Fatal]

NARRATIVE: CASE EVENT DATE: 20170211
